FAERS Safety Report 8146136-3 (Version None)
Quarter: 2012Q1

REPORT INFORMATION
  Report Type: 
  Country: None (occurrence: None)
  Receive Date: 20120217
  Receipt Date: 20120215
  Transmission Date: 20120608
  Serious: Yes (Other)
  Sender: FDA-Public Use
  Company Number: US-PFIZER INC-2012041275

PATIENT
  Sex: Male
  Weight: 99.773 kg

DRUGS (4)
  1. CYMBALTA [Concomitant]
     Dosage: 60 MG, 1X/DAY
  2. MORPHINE [Concomitant]
     Dosage: 100 MG, 2X/DAY
  3. MORPHINE [Concomitant]
     Dosage: 30 MG, 4X/DAY
  4. LYRICA [Suspect]
     Indication: COMPLEX REGIONAL PAIN SYNDROME
     Dosage: 600 MG, 2X/DAY
     Route: 048
     Dates: start: 20060101

REACTIONS (3)
  - VISION BLURRED [None]
  - PNEUMONIA [None]
  - URINARY INCONTINENCE [None]
